FAERS Safety Report 21763166 (Version 1)
Quarter: 2022Q4

REPORT INFORMATION
  Report Type: Report from Study
  Country: CN (occurrence: CN)
  Receive Date: 20221221
  Receipt Date: 20221221
  Transmission Date: 20230112
  Serious: Yes (Other)
  Sender: FDA-Public Use
  Company Number: CN-JNJFOC-20221235858

PATIENT
  Age: 69 Year
  Sex: Male
  Weight: 83 kg

DRUGS (12)
  1. AMIVANTAMAB [Suspect]
     Active Substance: AMIVANTAMAB
     Indication: Non-small cell lung cancer metastatic
     Dosage: ALSO REPORTED AS 1400 MG
     Route: 042
     Dates: start: 20211216, end: 20220602
  2. MINOCYCLINE HYDROCHLORIDE [Concomitant]
     Active Substance: MINOCYCLINE HYDROCHLORIDE
     Indication: Prophylaxis
     Route: 048
     Dates: start: 20211216
  3. MUPIROCIN [Concomitant]
     Active Substance: MUPIROCIN
     Indication: Perineal infection
     Route: 050
     Dates: start: 20220210
  4. MUPIROCIN [Concomitant]
     Active Substance: MUPIROCIN
     Indication: Rash
     Route: 061
     Dates: start: 20220615
  5. MUPIROCIN [Concomitant]
     Active Substance: MUPIROCIN
     Indication: Paronychia
  6. MUPIROCIN [Concomitant]
     Active Substance: MUPIROCIN
     Indication: Perineal swelling
  7. DESONIDE [Concomitant]
     Active Substance: DESONIDE
     Route: 050
     Dates: start: 20220210
  8. NIFEDIPINE [Concomitant]
     Active Substance: NIFEDIPINE
     Indication: Hypertension
     Dosage: CONTROLLED-RELEASE TABLETS
     Route: 048
     Dates: start: 20220227
  9. UREA [Concomitant]
     Active Substance: UREA
     Indication: Dry skin
     Route: 061
     Dates: start: 20220408
  10. METHYLCOBALAMIN [Concomitant]
     Active Substance: METHYLCOBALAMIN
     Indication: Neuropathy peripheral
     Route: 048
     Dates: start: 20221020
  11. EDOXABAN TOSYLATE [Concomitant]
     Active Substance: EDOXABAN TOSYLATE
     Indication: Thrombosis prophylaxis
     Route: 048
     Dates: start: 20221117
  12. VITAMIN B1 [Concomitant]
     Active Substance: THIAMINE HYDROCHLORIDE
     Indication: Neuropathy peripheral
     Route: 048
     Dates: start: 20221214

REACTIONS (1)
  - Hepatic function abnormal [Not Recovered/Not Resolved]

NARRATIVE: CASE EVENT DATE: 20221214
